FAERS Safety Report 4961350-3 (Version None)
Quarter: 2006Q2

REPORT INFORMATION
  Report Type: 
  Country: None (occurrence: None)
  Receive Date: 20060403
  Receipt Date: 20050408
  Transmission Date: 20061013
  Serious: Yes (Hospitalization)
  Sender: FDA-Public Use
  Company Number: US-MERCK-0504USA01660

PATIENT
  Age: 45 Year
  Sex: Male
  Weight: 125 kg

DRUGS (1)
  1. VIOXX [Suspect]
     Indication: PAIN MANAGEMENT
     Route: 048
     Dates: start: 20030201, end: 20040201

REACTIONS (5)
  - CEREBRAL ARTERY OCCLUSION [None]
  - DEPRESSION [None]
  - INFECTED INSECT BITE [None]
  - MYOCARDIAL INFARCTION [None]
  - OBSESSIVE-COMPULSIVE DISORDER [None]
